FAERS Safety Report 12786920 (Version 1)
Quarter: 2016Q3

REPORT INFORMATION
  Report Type: Spontaneous
  Country: US (occurrence: US)
  Receive Date: 20160928
  Receipt Date: 20160928
  Transmission Date: 20161109
  Serious: No
  Sender: FDA-Public Use
  Company Number: US-PFIZER INC-2016447747

PATIENT
  Sex: Female

DRUGS (1)
  1. XELJANZ [Suspect]
     Active Substance: TOFACITINIB CITRATE
     Dosage: UNK
     Dates: start: 201403

REACTIONS (5)
  - Weight loss poor [Unknown]
  - Abdominal distension [Unknown]
  - Cardiac disorder [Unknown]
  - Swelling [Unknown]
  - Peripheral swelling [Unknown]
